FAERS Safety Report 17731882 (Version 4)
Quarter: 2021Q2

REPORT INFORMATION
  Report Type: Spontaneous
  Country: FR (occurrence: FR)
  Receive Date: 20200501
  Receipt Date: 20210520
  Transmission Date: 20210716
  Serious: Yes (Other)
  Sender: FDA-Public Use
  Company Number: FR-ASTRAZENECA-2020SE57158

PATIENT
  Age: 864 Month
  Sex: Female

DRUGS (4)
  1. LYNPARZA [Suspect]
     Active Substance: OLAPARIB
     Indication: OVARIAN CANCER
     Dosage: 50 MG THREE TIMES A WEEK (ON MONDAY, WEDNESDAY AND FRIDAY)
     Route: 048
     Dates: start: 202002, end: 20200422
  2. SPASFON [Concomitant]
     Route: 065
  3. LYNPARZA [Suspect]
     Active Substance: OLAPARIB
     Indication: OVARIAN CANCER
     Route: 048
     Dates: start: 201912, end: 202002
  4. LYNPARZA [Suspect]
     Active Substance: OLAPARIB
     Indication: OVARIAN CANCER
     Dosage: 50 MG THREE TIMES A WEEK FORMULATION: CAPSULE; 1 CAPSULE ON MONDAY, WEDNESDAY AND FRIDAY
     Route: 048
     Dates: start: 20200426

REACTIONS (19)
  - Gastrointestinal disorder [Unknown]
  - Aerophagia [Unknown]
  - Flatulence [Unknown]
  - Liver disorder [Unknown]
  - Urinary tract infection [Unknown]
  - Fatigue [Unknown]
  - Dyspepsia [Recovered/Resolved]
  - Gastrointestinal sounds abnormal [Unknown]
  - Renal pain [Unknown]
  - Dizziness [Unknown]
  - Constipation [Unknown]
  - Abdominal pain upper [Unknown]
  - Gastrointestinal pain [Unknown]
  - Muscle spasms [Recovered/Resolved]
  - Nausea [Unknown]
  - Pain [Not Recovered/Not Resolved]
  - Dyspnoea [Unknown]
  - Diarrhoea [Unknown]
  - Off label use [Not Recovered/Not Resolved]

NARRATIVE: CASE EVENT DATE: 201912
